FAERS Safety Report 17910459 (Version 5)
Quarter: 2020Q3

REPORT INFORMATION
  Report Type: Report from Study
  Country: None (occurrence: IL)
  Receive Date: 20200617
  Receipt Date: 20200717
  Transmission Date: 20201103
  Serious: Yes (Hospitalization, Other)
  Sender: FDA-Public Use
  Company Number: IL-ABBVIE-20K-082-3445317-00

PATIENT
  Age: 51 Year
  Sex: Female

DRUGS (2)
  1. HUMIRA [Suspect]
     Active Substance: ADALIMUMAB
     Indication: RHEUMATOID ARTHRITIS
     Route: 058
     Dates: start: 20200505, end: 20200627
  2. HUMIRA [Suspect]
     Active Substance: ADALIMUMAB
     Indication: ANKYLOSING SPONDYLITIS
     Route: 058
     Dates: start: 20200709

REACTIONS (24)
  - Hospitalisation [Unknown]
  - Immune system disorder [Unknown]
  - Intervertebral disc protrusion [Unknown]
  - Emotional disorder [Unknown]
  - Emotional distress [Unknown]
  - Insomnia [Not Recovered/Not Resolved]
  - C-reactive protein increased [Not Recovered/Not Resolved]
  - Spinal disorder [Unknown]
  - Pelvic pain [Recovered/Resolved]
  - Pelvic inflammatory disease [Recovering/Resolving]
  - Pyrexia [Recovered/Resolved]
  - Mobility decreased [Not Recovered/Not Resolved]
  - Arthralgia [Not Recovered/Not Resolved]
  - Vulvovaginal pruritus [Not Recovered/Not Resolved]
  - Drug ineffective [Unknown]
  - Vaginal ulceration [Not Recovered/Not Resolved]
  - Spondylitis [Not Recovered/Not Resolved]
  - Pelvic pain [Not Recovered/Not Resolved]
  - Pneumonia [Unknown]
  - Pelvic pain [Not Recovered/Not Resolved]
  - Infection [Unknown]
  - Unevaluable event [Unknown]
  - Vaginal discharge [Not Recovered/Not Resolved]
  - Pyrexia [Recovered/Resolved]

NARRATIVE: CASE EVENT DATE: 2020
